FAERS Safety Report 9478458 (Version 2)
Quarter: 2013Q3

REPORT INFORMATION
  Report Type: Spontaneous
  Country: FR (occurrence: FR)
  Receive Date: 20130827
  Receipt Date: 20130827
  Transmission Date: 20140515
  Serious: Yes (Hospitalization)
  Sender: FDA-Public Use
  Company Number: FR-PFIZER INC-2013001121

PATIENT
  Age: 47 Year
  Sex: Female

DRUGS (8)
  1. ANSATIPINE [Suspect]
     Indication: TUBERCULOSIS
     Dosage: 150 MG, 4X/DAY
     Route: 048
     Dates: start: 20121018, end: 20121130
  2. PIRILENE [Suspect]
     Indication: TUBERCULOSIS
     Dosage: 500 MG, 3X/DAY
     Route: 048
     Dates: start: 20121018, end: 20121130
  3. TRUVADA [Suspect]
     Indication: ANTIRETROVIRAL THERAPY
     Dosage: 200MG/245MG, 1X/DAY
     Route: 048
     Dates: start: 20121106, end: 20121130
  4. DEXAMBUTOL [Concomitant]
     Indication: TUBERCULOSIS
     Dosage: 500 MG, 2X/DAY
     Route: 048
     Dates: start: 20121018, end: 20121130
  5. RIMIFON [Concomitant]
     Indication: TUBERCULOSIS
     Dosage: 250 MG, 1X/DAY
     Route: 048
     Dates: start: 20121018, end: 20121130
  6. NORVIR [Concomitant]
     Indication: ANTIRETROVIRAL THERAPY
     Dosage: 100 MG, 1X/DAY
     Route: 048
     Dates: start: 20121106
  7. PREZISTA [Concomitant]
     Indication: ANTIRETROVIRAL THERAPY
     Dosage: 400 MG, 2X/DAY
     Route: 048
     Dates: start: 20121106
  8. VITAMIN B1 AND B6 [Concomitant]
     Dosage: 2 DF/DAY
     Route: 048

REACTIONS (2)
  - Renal failure acute [Recovering/Resolving]
  - Anaemia [Unknown]
